FAERS Safety Report 6307936-5 (Version None)
Quarter: 2009Q3

REPORT INFORMATION
  Report Type: 
  Country: None (occurrence: None)
  Receive Date: 20090813
  Receipt Date: 20090810
  Transmission Date: 20100115
  Serious: Yes (Other)
  Sender: FDA-Public Use
  Company Number: US-ELI_LILLY_AND_COMPANY-US200908001892

PATIENT
  Sex: Female

DRUGS (2)
  1. HUMULIN 70/30 [Suspect]
     Dosage: 38 U, 2/D
     Dates: start: 20000101
  2. HUMULIN 70/30 [Suspect]
     Dosage: 38 U, 2/D
     Dates: start: 20090808

REACTIONS (3)
  - CATARACT [None]
  - EYE HAEMORRHAGE [None]
  - VISUAL IMPAIRMENT [None]
